FAERS Safety Report 4521389-9 (Version None)
Quarter: 2004Q4

REPORT INFORMATION
  Report Type: 
  Country: None (occurrence: None)
  Receive Date: 20041208
  Receipt Date: 20041003
  Transmission Date: 20050328
  Serious: Yes (Hospitalization)
  Sender: FDA-Public Use
  Company Number: DE-MERCK-0410DEU00044

PATIENT
  Age: 64 Year
  Sex: Female
  Weight: 85 kg

DRUGS (6)
  1. VIOXX [Suspect]
     Indication: BACK PAIN
     Route: 048
     Dates: start: 20030101, end: 20041007
  2. VIOXX [Suspect]
     Indication: NECK PAIN
     Route: 048
     Dates: start: 20030101, end: 20041007
  3. PANTOPRAZOLE SODIUM [Concomitant]
     Route: 065
     Dates: start: 20020601
  4. DOXEPIN HYDROCHLORIDE [Concomitant]
     Route: 065
     Dates: start: 20030101
  5. ZOPICLONE [Concomitant]
     Route: 065
     Dates: start: 20020101
  6. OXYCODONE HYDROCHLORIDE [Concomitant]
     Route: 065
     Dates: start: 20030601, end: 20040201

REACTIONS (10)
  - COMMINUTED FRACTURE [None]
  - DIPLOPIA [None]
  - DIZZINESS [None]
  - FALL [None]
  - HYPERHIDROSIS [None]
  - PRESCRIBED OVERDOSE [None]
  - SPINAL FRACTURE [None]
  - TINNITUS [None]
  - UPPER LIMB FRACTURE [None]
  - VERTIGO [None]
